FAERS Safety Report 5316632-2 (Version None)
Quarter: 2007Q2

REPORT INFORMATION
  Report Type: 
  Country: None (occurrence: None)
  Receive Date: 20070430
  Receipt Date: 20070430
  Transmission Date: 20071010
  Serious: Yes (Hospitalization)
  Sender: FDA-Public Use
  Company Number: None

PATIENT
  Sex: Female
  Weight: 66.3 kg

DRUGS (1)
  1. TEMOZOLOMIDE [Suspect]
     Dosage: 4940 MG

REACTIONS (7)
  - COGNITIVE DISORDER [None]
  - CONVULSION [None]
  - LOBAR PNEUMONIA [None]
  - MUSCLE TWITCHING [None]
  - PLATELET COUNT DECREASED [None]
  - PULMONARY EMBOLISM [None]
  - WHITE BLOOD CELL COUNT DECREASED [None]
